FAERS Safety Report 13490651 (Version 2)
Quarter: 2017Q2

REPORT INFORMATION
  Report Type: Spontaneous
  Country: NL (occurrence: NL)
  Receive Date: 20170427
  Receipt Date: 20170511
  Transmission Date: 20170830
  Serious: Yes (Other)
  Sender: FDA-Public Use
  Company Number: NL-B.I. PHARMACEUTICALS,INC./RIDGEFIELD-2017-BI-023725

PATIENT
  Age: 72 Year
  Sex: Male
  Weight: 82 kg

DRUGS (2)
  1. PRADAXA [Suspect]
     Active Substance: DABIGATRAN ETEXILATE MESYLATE
     Route: 048
     Dates: start: 20170420
  2. PRADAXA [Suspect]
     Active Substance: DABIGATRAN ETEXILATE MESYLATE
     Indication: ATRIAL FIBRILLATION
     Route: 048
     Dates: start: 20160701, end: 20170309

REACTIONS (2)
  - Drug administration error [Unknown]
  - Cerebrovascular accident [Recovered/Resolved]

NARRATIVE: CASE EVENT DATE: 201703
